FAERS Safety Report 19377017 (Version 10)
Quarter: 2021Q3

REPORT INFORMATION
  Report Type: Report from Study
  Country: AU (occurrence: AU)
  Receive Date: 20210604
  Receipt Date: 20210907
  Transmission Date: 20211014
  Serious: Yes (Hospitalization)
  Sender: FDA-Public Use
  Company Number: AU-EISAI MEDICAL RESEARCH-EC-2021-093838

PATIENT
  Age: 16 Year
  Sex: Male
  Weight: 48.95 kg

DRUGS (8)
  1. LENVATINIB [Suspect]
     Active Substance: LENVATINIB
     Route: 048
     Dates: start: 20210525, end: 20210528
  2. ONDANSETRON [Concomitant]
     Active Substance: ONDANSETRON
     Dates: start: 20210221, end: 20210528
  3. TAPENTADOL [Concomitant]
     Active Substance: TAPENTADOL
     Dates: start: 20210427
  4. LENVATINIB [Suspect]
     Active Substance: LENVATINIB
     Indication: GASTROINTESTINAL STROMAL TUMOUR
     Route: 048
     Dates: start: 20210209, end: 20210503
  5. OXYCODONE [Concomitant]
     Active Substance: OXYCODONE
     Dates: start: 20210317, end: 20210527
  6. CELECOXIB. [Concomitant]
     Active Substance: CELECOXIB
     Dates: start: 20210427
  7. GABAPENTIN. [Concomitant]
     Active Substance: GABAPENTIN
     Dates: start: 20200714
  8. ACETAMINOPHEN. [Concomitant]
     Active Substance: ACETAMINOPHEN
     Dates: start: 20210326

REACTIONS (1)
  - Musculoskeletal pain [Recovered/Resolved]

NARRATIVE: CASE EVENT DATE: 20210525
